FAERS Safety Report 9611792 (Version 1)
Quarter: 2013Q4

REPORT INFORMATION
  Report Type: Spontaneous
  Country: CH (occurrence: CH)
  Receive Date: 20131010
  Receipt Date: 20131010
  Transmission Date: 20140711
  Serious: Yes (Hospitalization, Other)
  Sender: FDA-Public Use
  Company Number: CH-JNJFOC-20131000496

PATIENT
  Age: 59 Year
  Sex: Female

DRUGS (23)
  1. TOPAMAX [Suspect]
     Indication: PARTIAL SEIZURES
     Dosage: GABE PER PEG
     Route: 048
     Dates: start: 201308, end: 20130913
  2. TOPAMAX [Suspect]
     Indication: EPILEPSY
     Dosage: GABE PER PEG
     Route: 048
     Dates: start: 201308, end: 20130913
  3. VIMPAT [Suspect]
     Indication: EPILEPSY
     Dosage: GABE PER PEG
     Route: 065
     Dates: start: 201308, end: 20130913
  4. VIMPAT [Suspect]
     Indication: PARTIAL SEIZURES
     Dosage: GABE PER PEG
     Route: 065
     Dates: start: 201308, end: 20130913
  5. POTASSIUM [Concomitant]
     Route: 065
  6. NASIVIN [Concomitant]
     Route: 065
  7. CIPRALEX [Concomitant]
     Route: 065
  8. SPASMO URGENIN [Concomitant]
     Route: 065
  9. SEROQUEL [Concomitant]
     Route: 065
  10. DIFLUCAN [Concomitant]
     Route: 065
  11. ESOMEPRAZOLE [Concomitant]
     Route: 065
  12. VITAMIN D3 [Concomitant]
     Route: 065
  13. VALTREX [Concomitant]
     Route: 065
  14. ASPEGIC [Concomitant]
     Route: 065
  15. PREDNISON [Concomitant]
     Route: 065
  16. NOPIL [Concomitant]
     Route: 065
  17. DIFLUCAN [Concomitant]
     Route: 065
  18. CALCIUM [Concomitant]
     Route: 065
  19. MAGNESIUM [Concomitant]
     Route: 065
  20. DAFALGAN [Concomitant]
     Route: 065
  21. OXYNORM [Concomitant]
     Route: 065
  22. TRANSIPEG [Concomitant]
     Route: 065
  23. REMERON [Concomitant]
     Route: 065

REACTIONS (6)
  - Face oedema [Recovered/Resolved]
  - Lymphadenopathy [Unknown]
  - Hepatic enzyme increased [Recovering/Resolving]
  - Drug reaction with eosinophilia and systemic symptoms [Recovered/Resolved]
  - Rash maculo-papular [Recovered/Resolved]
  - Body temperature increased [Recovered/Resolved]
